FAERS Safety Report 9670988 (Version 1)
Quarter: 2013Q4

REPORT INFORMATION
  Report Type: Spontaneous
  Country: GB (occurrence: GB)
  Receive Date: 20131106
  Receipt Date: 20131106
  Transmission Date: 20140711
  Serious: Yes (Hospitalization)
  Sender: FDA-Public Use
  Company Number: GB-MYLANLABS-2013S1024017

PATIENT
  Sex: Male

DRUGS (2)
  1. FLUOXETINE [Suspect]
     Indication: DEPRESSION
     Route: 065
  2. CODEINE [Concomitant]
     Route: 065

REACTIONS (4)
  - Serotonin syndrome [Recovering/Resolving]
  - Joint dislocation [Recovering/Resolving]
  - Spinal compression fracture [Unknown]
  - Overdose [Recovering/Resolving]
